FAERS Safety Report 7982372-4 (Version None)
Quarter: 2011Q4

REPORT INFORMATION
  Report Type: 
  Country: None (occurrence: None)
  Receive Date: 20111215
  Receipt Date: 20111205
  Transmission Date: 20120403
  Serious: Yes (Hospitalization, Other)
  Sender: FDA-Public Use
  Company Number: PHHY2011BR04359

PATIENT
  Sex: Female

DRUGS (12)
  1. JANUMET [Concomitant]
     Dosage: 1 DF, DAILY AT NIGHT
  2. DIOVAN HCT [Suspect]
     Indication: HYPERTENSION
     Dosage: 1 DF, DAILY (160 MG VALS AND 12.5 MG HYDR)
     Route: 048
  3. DIGOXIN [Concomitant]
     Dosage: 1 DF, DAILY
  4. NEBIVOLOL HCL [Concomitant]
     Dosage: 1 DF, DAILY
  5. ATACAND [Concomitant]
     Dosage: 1 DF, DAILY
  6. ZETIA [Concomitant]
     Dosage: 1 DF, DAILY
  7. FEMARA [Suspect]
     Dosage: 1 DF, DAILY
     Dates: start: 20110801, end: 20110920
  8. LIPLESS [Concomitant]
     Dosage: 1 DF, DAILY
  9. CRESTOR [Concomitant]
  10. FEMARA [Suspect]
     Indication: BREAST NEOPLASM
     Dosage: 1 DF, DAILY
     Route: 048
     Dates: start: 20101228
  11. ALDACTONE [Concomitant]
     Dosage: 1 DF, DAILY
  12. LASIX [Concomitant]
     Dosage: 1 DF, 3 TIMES WEEKLY

REACTIONS (8)
  - MYOCARDITIS [None]
  - FATIGUE [None]
  - HEART VALVE INCOMPETENCE [None]
  - ARTERIOSCLEROSIS [None]
  - CARDIAC DISORDER [None]
  - CONDITION AGGRAVATED [None]
  - ARTHRALGIA [None]
  - DIZZINESS [None]
